FAERS Safety Report 18151430 (Version 1)
Quarter: 2020Q3

REPORT INFORMATION
  Report Type: Spontaneous
  Country: US (occurrence: US)
  Receive Date: 20200814
  Receipt Date: 20200814
  Transmission Date: 20201103
  Serious: No
  Sender: FDA-Public Use
  Company Number: US-HORIZON-PRO-0187-2020

PATIENT
  Age: 11 Year
  Sex: Female

DRUGS (1)
  1. PROCYSBI [Suspect]
     Active Substance: CYSTEAMINE BITARTRATE
     Indication: CYSTINOSIS
     Dosage: 300 MG 2 PACKETS EVERY TWELVE HOURS BY MOUTH
     Route: 048

REACTIONS (1)
  - Nausea [Unknown]
